FAERS Safety Report 24557317 (Version 1)
Quarter: 2024Q4

REPORT INFORMATION
  Report Type: Spontaneous
  Country: US (occurrence: None)
  Receive Date: 20241028
  Receipt Date: 20241028
  Transmission Date: 20250114
  Serious: Yes (unspecified)
  Sender: Public
  Company Number: None

PATIENT
  Age: 60 Year
  Sex: Male
  Weight: 108 kg

DRUGS (8)
  1. ULTOMIRIS [Suspect]
     Active Substance: RAVULIZUMAB-CWVZ
     Indication: Myasthenia gravis
     Dosage: OTHER FREQUENCY : EVERY 8 WEEKS;?
     Route: 042
     Dates: end: 20241025
  2. PREDNISONE [Concomitant]
     Active Substance: PREDNISONE
  3. MESTINON [Concomitant]
     Active Substance: PYRIDOSTIGMINE BROMIDE
  4. Azathyoprine [Concomitant]
  5. ZYRTEC [Concomitant]
     Active Substance: CETIRIZINE HYDROCHLORIDE
  6. Bi pap machine [Concomitant]
  7. Tylonol [Concomitant]
  8. ADVIL [Concomitant]
     Active Substance: IBUPROFEN

REACTIONS (8)
  - Pain in extremity [None]
  - Pain in extremity [None]
  - Muscle spasms [None]
  - Pallor [None]
  - Nausea [None]
  - Hyperhidrosis [None]
  - Chills [None]
  - Infusion related reaction [None]

NARRATIVE: CASE EVENT DATE: 20241025
